FAERS Safety Report 5653079-3 (Version None)
Quarter: 2008Q1

REPORT INFORMATION
  Report Type: 
  Country: None (occurrence: None)
  Receive Date: 20080131
  Receipt Date: 20080103
  Transmission Date: 20080703
  Serious: No
  Sender: FDA-Public Use
  Company Number: US200710005533

PATIENT
  Age: 70 Year
  Sex: Female

DRUGS (7)
  1. BYETTA [Suspect]
     Indication: WEIGHT DECREASED
     Dosage: SEE IMAGE
     Route: 058
     Dates: start: 20070601, end: 20070901
  2. BYETTA [Suspect]
     Indication: WEIGHT DECREASED
     Dosage: SEE IMAGE
     Route: 058
     Dates: start: 20070801, end: 20070901
  3. BYETTA [Suspect]
     Indication: WEIGHT DECREASED
     Dosage: SEE IMAGE
     Route: 058
     Dates: start: 20070901, end: 20070901
  4. BYETTA [Suspect]
     Indication: WEIGHT DECREASED
     Dosage: SEE IMAGE
     Route: 058
     Dates: start: 20070901
  5. BYETTA [Suspect]
  6. VITAMINS NOS (VITAMINS NOS) [Concomitant]
  7. AMBIEN [Concomitant]

REACTIONS (9)
  - ABDOMINAL PAIN LOWER [None]
  - CYSTITIS [None]
  - DRUG EFFECT DECREASED [None]
  - DYSGEUSIA [None]
  - HERPES ZOSTER [None]
  - INCORRECT DOSE ADMINISTERED [None]
  - PAROSMIA [None]
  - SINUSITIS [None]
  - WEIGHT DECREASED [None]
